FAERS Safety Report 10356266 (Version 1)
Quarter: 2014Q3

REPORT INFORMATION
  Report Type: Other
  Country: GB (occurrence: GB)
  Receive Date: 20140801
  Receipt Date: 20140801
  Transmission Date: 20150326
  Serious: Yes (Other)
  Sender: FDA-Public Use
  Company Number: GB-BRISTOL-MYERS SQUIBB COMPANY-21248257

PATIENT
  Age: 32 Year
  Sex: Female

DRUGS (1)
  1. METFORMIN HCL [Suspect]
     Active Substance: METFORMIN HYDROCHLORIDE
     Indication: GESTATIONAL DIABETES
     Dosage: 1 G

REACTIONS (4)
  - Ketoacidosis [Recovered/Resolved]
  - Normal newborn [Unknown]
  - Maternal exposure timing unspecified [Recovered/Resolved]
  - Induced labour [Unknown]
